FAERS Safety Report 4931463-0 (Version None)
Quarter: 2006Q1

REPORT INFORMATION
  Report Type: 
  Country: None (occurrence: None)
  Receive Date: 20060228
  Receipt Date: 20060206
  Transmission Date: 20060701
  Serious: Yes (Other)
  Sender: FDA-Public Use
  Company Number: US200602001291

PATIENT
  Age: 70 Year
  Sex: Female

DRUGS (2)
  1. FORTEO [Suspect]
     Indication: OSTEOPOROSIS
     Dates: start: 20041201
  2. FORTEO [Concomitant]

REACTIONS (4)
  - COMPRESSION FRACTURE [None]
  - FALL [None]
  - LOWER LIMB FRACTURE [None]
  - ROTATOR CUFF SYNDROME [None]
